FAERS Safety Report 4461269-0 (Version None)
Quarter: 2004Q3

REPORT INFORMATION
  Report Type: 
  Country: None (occurrence: None)
  Receive Date: 20040928
  Receipt Date: 20040915
  Transmission Date: 20050211
  Serious: Yes (Death)
  Sender: FDA-Public Use
  Company Number: GB-MERCK-0409GBR00156

PATIENT
  Age: 77 Year
  Sex: Male

DRUGS (4)
  1. ATORVASTATIN CALCIUM [Suspect]
     Indication: BLOOD CHOLESTEROL INCREASED
     Route: 048
     Dates: start: 20040611, end: 20040709
  2. OMEPRAZOLE [Concomitant]
     Indication: DUODENAL ULCER
     Route: 048
     Dates: start: 20030410
  3. OMEPRAZOLE [Concomitant]
     Indication: GASTROOESOPHAGEAL REFLUX DISEASE
     Route: 048
     Dates: start: 20030410
  4. ZOCOR [Suspect]
     Indication: BLOOD CHOLESTEROL INCREASED
     Route: 048
     Dates: start: 20040709

REACTIONS (4)
  - DEEP VEIN THROMBOSIS [None]
  - DYSPNOEA EXERTIONAL [None]
  - MYOCARDIAL ISCHAEMIA [None]
  - PULMONARY EMBOLISM [None]
